FAERS Safety Report 9837635 (Version 1)
Quarter: 2013Q4

REPORT INFORMATION
  Report Type: Spontaneous
  Country: US (occurrence: None)
  Receive Date: 20131204
  Receipt Date: 20131204
  Transmission Date: 20140711
  Serious: Yes (Hospitalization)
  Sender: FDA-Public Use
  Company Number: 1511456

PATIENT
  Age: 59 Year
  Sex: Female
  Weight: 67.91 kg

DRUGS (3)
  1. PENTOSTATINE [Suspect]
     Indication: CHRONIC LYMPHOCYTIC LEUKAEMIA
     Dosage: 7 MG MILLIGRAM(S), 1 WEEK, INTRAVENOUS DRIP
     Route: 041
     Dates: start: 20120203, end: 20120222
  2. RITUXAN [Suspect]
     Indication: CHRONIC LYMPHOCYTIC LEUKAEMIA
     Route: 041
     Dates: start: 20120203, end: 20120222
  3. CYTOXAN [Suspect]
     Indication: CHRONIC LYMPHOCYTIC LEUKAEMIA
     Dosage: UNKNOWN - UNKNOWN, (UNKNOWN) THERAPY DATES  INTRAVENOUS DRIP
     Route: 041

REACTIONS (4)
  - Diarrhoea [None]
  - Asthenia [None]
  - Pyrexia [None]
  - Chronic lymphocytic leukaemia [None]
